FAERS Safety Report 8671450 (Version 2)
Quarter: 2013Q3

REPORT INFORMATION
  Report Type: Report from Study
  Country: US (occurrence: US)
  Receive Date: 20120718
  Receipt Date: 20130920
  Transmission Date: 20140515
  Serious: Yes (Hospitalization, Other)
  Sender: FDA-Public Use
  Company Number: US-ACTELION-A-US2007-18710

PATIENT
  Age: 43 Year
  Sex: Female

DRUGS (11)
  1. TRACLEER [Suspect]
     Indication: PULMONARY ARTERIAL HYPERTENSION
     Dosage: 125 MG, BID
     Route: 048
     Dates: start: 2007
  2. VELETRI [Suspect]
     Indication: PULMONARY ARTERIAL HYPERTENSION
     Dosage: UNK
     Route: 041
     Dates: start: 2010
  3. COUMADIN [Concomitant]
     Dosage: 4 MG, QD
     Dates: start: 2007
  4. VITAMIN D [Concomitant]
     Dosage: 1000 IU, BID
     Dates: start: 2010
  5. GLUCOSAMINE [Concomitant]
     Dosage: 1500 MG, BID
     Dates: start: 2010
  6. FUROSEMIDE [Concomitant]
     Dosage: 40 MG, BID
     Dates: start: 2007
  7. ALDACTONE [Concomitant]
     Dosage: 25 MG, BID
     Dates: start: 2007
  8. LEVETIRACETAM [Concomitant]
     Dosage: 1500 MG, QD
     Dates: start: 2010
  9. SIMVASTATIN [Concomitant]
     Dosage: 20 MG, QD
     Dates: start: 2007
  10. ONDANSETRON [Concomitant]
     Dosage: 4 MG, PRN
     Dates: start: 201301
  11. TRAMADOL [Concomitant]
     Dosage: 50 MG, PRN
     Dates: start: 2010

REACTIONS (18)
  - Convulsion [Recovering/Resolving]
  - Precancerous mucosal lesion [Not Recovered/Not Resolved]
  - Renal cyst [Unknown]
  - Biliary cyst [Unknown]
  - Hepatic cyst [Unknown]
  - Pulmonary arterial hypertension [Recovering/Resolving]
  - Condition aggravated [Recovering/Resolving]
  - Loss of consciousness [Unknown]
  - Dyspnoea [Unknown]
  - Renal disorder [Unknown]
  - Cough [Not Recovered/Not Resolved]
  - Abdominal distension [Not Recovered/Not Resolved]
  - Orbital oedema [Not Recovered/Not Resolved]
  - Nephrolithiasis [Not Recovered/Not Resolved]
  - Laceration [Unknown]
  - Blood pressure increased [Unknown]
  - Malaise [Unknown]
  - Flushing [Not Recovered/Not Resolved]
